FAERS Safety Report 13129880 (Version 1)
Quarter: 2017Q1

REPORT INFORMATION
  Report Type: Spontaneous
  Country: US (occurrence: US)
  Receive Date: 20170118
  Receipt Date: 20170118
  Transmission Date: 20170428
  Serious: Yes (Hospitalization)
  Sender: FDA-Public Use
  Company Number: None

PATIENT
  Age: 27 Year
  Sex: Male

DRUGS (8)
  1. TIVICAY [Suspect]
     Active Substance: DOLUTEGRAVIR SODIUM
     Indication: HIV INFECTION
     Route: 048
  2. NORVIR [Suspect]
     Active Substance: RITONAVIR
  3. KLONIPIN [Concomitant]
     Active Substance: CLONAZEPAM
  4. AMOXICILLIN. [Concomitant]
     Active Substance: AMOXICILLIN
  5. TRAZAZONE HC [Concomitant]
  6. QUETIIPINE FUMARATE [Concomitant]
  7. EMTRIVA [Suspect]
     Active Substance: EMTRICITABINE
  8. PREZISTA [Suspect]
     Active Substance: DARUNAVIR ETHANOLATE

REACTIONS (1)
  - Hospitalisation [None]
